FAERS Safety Report 6693300-6 (Version None)
Quarter: 2010Q2

REPORT INFORMATION
  Report Type: 
  Country: None (occurrence: None)
  Receive Date: 20100422
  Receipt Date: 20100414
  Transmission Date: 20101027
  Serious: Yes (Other)
  Sender: FDA-Public Use
  Company Number: FI-AMGEN-QUU397575

PATIENT
  Sex: Male
  Weight: 87.9 kg

DRUGS (8)
  1. NPLATE [Suspect]
     Indication: IDIOPATHIC THROMBOCYTOPENIC PURPURA
     Route: 058
     Dates: start: 20091124
  2. ATENOLOL [Concomitant]
  3. FOSAMAX [Concomitant]
  4. NEXIUM [Concomitant]
  5. CORTISONE [Concomitant]
  6. DISOPYRAMIDE [Concomitant]
  7. CALCIUM WITH VITAMIN D [Concomitant]
  8. PREDNISOLONE [Concomitant]

REACTIONS (6)
  - ARTERIAL STENOSIS [None]
  - EPISTAXIS [None]
  - MIGRAINE [None]
  - PLATELET COUNT DECREASED [None]
  - TRANSIENT ISCHAEMIC ATTACK [None]
  - VISUAL IMPAIRMENT [None]
